FAERS Safety Report 5272092-1 (Version None)
Quarter: 2007Q1

REPORT INFORMATION
  Report Type: 
  Country: None (occurrence: None)
  Receive Date: 20070322
  Receipt Date: 20070316
  Transmission Date: 20070707
  Serious: Yes (Other)
  Sender: FDA-Public Use
  Company Number: DEWYE058616MAR07

PATIENT
  Age: 82 Year
  Sex: Female

DRUGS (12)
  1. VENLAFAXINE HCL [Suspect]
     Indication: DEPRESSION
     Route: 048
     Dates: start: 20060117, end: 20061025
  2. VENLAFAXINE HCL [Interacting]
     Route: 048
     Dates: start: 20061026
  3. SEROQUEL [Interacting]
     Indication: DEPRESSION
     Route: 048
     Dates: start: 20060601
  4. RISPERDAL [Interacting]
     Indication: DEPRESSION
     Route: 048
     Dates: start: 20060926, end: 20061012
  5. RISPERDAL [Interacting]
     Route: 048
     Dates: start: 20061013, end: 20061019
  6. KALINOR [Concomitant]
     Route: 048
     Dates: start: 20061011, end: 20061019
  7. OLMESARTAN [Concomitant]
     Indication: HYPERTENSION
     Route: 048
     Dates: start: 20060801
  8. IBUHEXAL [Concomitant]
     Route: 048
     Dates: start: 20060908, end: 20061120
  9. PANTOPRAZOLE SODIUM [Concomitant]
     Route: 048
     Dates: start: 20060908
  10. MIRTAZAPINE [Interacting]
     Indication: DEPRESSION
     Route: 048
     Dates: start: 20060601, end: 20061115
  11. MIRTAZAPINE [Interacting]
     Route: 048
     Dates: start: 20061116
  12. ZOLDEM [Concomitant]
     Route: 048
     Dates: start: 20060601, end: 20061114

REACTIONS (2)
  - DRUG INTERACTION [None]
  - GRAND MAL CONVULSION [None]
